FAERS Safety Report 12590602 (Version 1)
Quarter: 2016Q3

REPORT INFORMATION
  Report Type: Other
  Country: JP (occurrence: JP)
  Receive Date: 20160725
  Receipt Date: 20160725
  Transmission Date: 20161109
  Serious: Yes (Hospitalization)
  Sender: FDA-Public Use
  Company Number: JP-LUPIN PHARMACEUTICALS INC.-2016-00997

PATIENT
  Age: 82 Year
  Sex: Male

DRUGS (4)
  1. TAXOTERE [Suspect]
     Active Substance: DOCETAXEL
     Indication: NEOPLASM MALIGNANT
     Route: 065
  2. CEFCAPENE + PIVOXIL [Suspect]
     Active Substance: CEFCAPENE PIVOXIL
     Indication: ANTIBIOTIC PROPHYLAXIS
     Route: 065
  3. LEVOFLOXACIN. [Suspect]
     Active Substance: LEVOFLOXACIN
     Indication: ANTIBIOTIC PROPHYLAXIS
     Route: 065
  4. CEFAZOLIN [Concomitant]
     Active Substance: CEFAZOLIN
     Indication: ANTIBIOTIC PROPHYLAXIS
     Route: 065

REACTIONS (6)
  - Hypoalbuminaemia [None]
  - Decreased appetite [None]
  - Malnutrition [None]
  - Weight decreased [None]
  - Dehydration [None]
  - Clostridium difficile infection [Recovered/Resolved]
